FAERS Safety Report 15150269 (Version 1)
Quarter: 2018Q3

REPORT INFORMATION
  Report Type: Spontaneous
  Country: NL (occurrence: NL)
  Receive Date: 20180716
  Receipt Date: 20180716
  Transmission Date: 20181010
  Serious: Yes (Other)
  Sender: FDA-Public Use
  Company Number: NL-US WORLDMEDS, LLC-STA_00017428

PATIENT
  Age: 70 Year
  Sex: Female

DRUGS (13)
  1. METOPROLOL 50 MG [Concomitant]
     Active Substance: METOPROLOL
  2. DOMPERIDONE 10MG [Concomitant]
     Active Substance: DOMPERIDONE
  3. OMEPRAZOLE MSR 40MG [Concomitant]
  4. LEVODOPA/CARBIDOPA/ENTACAPONE 125/31,2/200MG [Concomitant]
  5. RIVASTIGMINE 9,5MG/24HRS [Concomitant]
  6. DESMOPRESSIN 0,1MG [Concomitant]
  7. CALCIUMCARBONATE/COLECALCIFEROL 1.25 G [Concomitant]
  8. LEVODOPA/CARBIDOPA/ENTACAPONE 100/25/200MG [Concomitant]
  9. LEVODOPA/CARBIDOPA/ENTACAPONE 150/37,5/200MG [Concomitant]
  10. DEXTRAN 70/HYPROMELLOSE EYEDR 1/3MG/ML FL 15ML [Concomitant]
  11. CLOZAPINE 25MG [Concomitant]
     Active Substance: CLOZAPINE
  12. LEVODOPA/CARBIDOPA/ENTACAPONE 75/18,7/200MG [Concomitant]
  13. APOMORPHINE HYDROCHLORIDE [Suspect]
     Active Substance: APOMORPHINE HYDROCHLORIDE
     Indication: PARKINSON^S DISEASE
     Dosage: FLOW 0.9 ML/HR(=4.5 MG/HR), BOLUS 0.17ML (=0.85 MG)
     Route: 058
     Dates: start: 20130924

REACTIONS (7)
  - Cystitis noninfective [Unknown]
  - Muscular weakness [Not Recovered/Not Resolved]
  - Injection site nodule [Not Recovered/Not Resolved]
  - Injection site inflammation [Recovering/Resolving]
  - Injection site necrosis [Recovering/Resolving]
  - Vomiting [Recovering/Resolving]
  - Weight decreased [Not Recovered/Not Resolved]

NARRATIVE: CASE EVENT DATE: 201406
